FAERS Safety Report 23805460 (Version 2)
Quarter: 2024Q4

REPORT INFORMATION
  Report Type: Report from Study
  Country: BR (occurrence: BR)
  Receive Date: 20240502
  Receipt Date: 20241017
  Transmission Date: 20250115
  Serious: Yes (Other)
  Sender: JOHNSON AND JOHNSON
  Company Number: BR-JNJFOC-20240465891

PATIENT
  Age: 8 Year
  Sex: Male
  Weight: 22 kg

DRUGS (1)
  1. REMICADE [Suspect]
     Active Substance: INFLIXIMAB
     Indication: Crohn^s disease
     Dosage: 2ND INFUSION ON JAN-2024, 3RD INFUSION ON 12-MAR-2024
     Route: 041
     Dates: start: 202311

REACTIONS (4)
  - Pneumonia [Unknown]
  - Drug ineffective [Unknown]
  - Adverse drug reaction [Unknown]
  - Malnutrition [Unknown]
